FAERS Safety Report 12114945 (Version 1)
Quarter: 2016Q1

REPORT INFORMATION
  Report Type: Spontaneous
  Country: KZ (occurrence: KZ)
  Receive Date: 20160225
  Receipt Date: 20160225
  Transmission Date: 20160526
  Serious: Yes (Hospitalization)
  Sender: FDA-Public Use
  Company Number: KZ-BAYER-2016-031522

PATIENT
  Age: 63 Year
  Sex: Female
  Weight: 56 kg

DRUGS (3)
  1. STIVARGA [Suspect]
     Active Substance: REGORAFENIB
     Indication: COLORECTAL CANCER METASTATIC
     Dosage: 1 DF, QID
     Dates: start: 20160121, end: 20160208
  2. STIVARGA [Suspect]
     Active Substance: REGORAFENIB
     Indication: METASTASES TO LUNG
  3. STIVARGA [Suspect]
     Active Substance: REGORAFENIB
     Indication: METASTASES TO LIVER

REACTIONS (9)
  - Asthenia [None]
  - Rash [None]
  - Condition aggravated [None]
  - Skin exfoliation [None]
  - Deafness [None]
  - Dysphonia [None]
  - Face oedema [None]
  - Dry skin [None]
  - Heart rate [None]

NARRATIVE: CASE EVENT DATE: 20160130
